FAERS Safety Report 21715234 (Version 1)
Quarter: 2022Q4

REPORT INFORMATION
  Report Type: Spontaneous
  Country: US (occurrence: None)
  Receive Date: 20221208
  Receipt Date: 20221208
  Transmission Date: 20230113
  Serious: No
  Sender: FDA-Public Use
  Company Number: None

PATIENT
  Sex: Female

DRUGS (2)
  1. GAMUNEX-C [Suspect]
     Active Substance: HUMAN IMMUNOGLOBULIN G
  2. DEVICE [Suspect]
     Active Substance: DEVICE
     Indication: Chronic inflammatory demyelinating polyradiculoneuropathy
     Dosage: FREQUENCY : MONTHLY;?
     Route: 042
     Dates: start: 202210

REACTIONS (3)
  - Needle issue [None]
  - Headache [None]
  - Pruritus [None]
